FAERS Safety Report 5051219-0 (Version None)
Quarter: 2006Q3

REPORT INFORMATION
  Report Type: 
  Country: None (occurrence: None)
  Receive Date: 20060714
  Receipt Date: 20060703
  Transmission Date: 20061208
  Serious: Yes (Disabling, Other)
  Sender: FDA-Public Use
  Company Number: PHBS2006JP10030

PATIENT
  Age: 79 Year
  Sex: Male

DRUGS (3)
  1. NEORAL [Suspect]
     Indication: PSORIASIS
     Dosage: 125 MG/D
     Route: 048
     Dates: start: 20060322, end: 20060325
  2. TALION [Concomitant]
     Dosage: 20 MG/D
     Route: 048
     Dates: start: 20051108, end: 20060325
  3. ANTIHYPERTENSIVES [Concomitant]

REACTIONS (3)
  - AORTIC DISSECTION [None]
  - GINGIVAL HYPERTROPHY [None]
  - HYPERTENSION [None]
